FAERS Safety Report 12135286 (Version 1)
Quarter: 2016Q1

REPORT INFORMATION
  Report Type: Spontaneous
  Country: US (occurrence: US)
  Receive Date: 20160301
  Receipt Date: 20160301
  Transmission Date: 20160526
  Serious: No
  Sender: FDA-Public Use
  Company Number: PHEH2016US004276

PATIENT
  Sex: Female

DRUGS (6)
  1. TRILEPTAL [Suspect]
     Active Substance: OXCARBAZEPINE
     Indication: TRIGEMINAL NEURALGIA
     Dosage: 0.5 DF, QD
     Route: 065
     Dates: start: 2013
  2. HORIZANT [Suspect]
     Active Substance: GABAPENTIN ENACARBIL
     Indication: SMALL FIBRE NEUROPATHY
     Dosage: 600 MG, QD (IN THE MORNING)
     Route: 048
     Dates: start: 201207
  3. TEGRETOL [Suspect]
     Active Substance: CARBAMAZEPINE
     Indication: TRIGEMINAL NEURALGIA
     Dosage: 0.5 DF, QD
     Route: 065
     Dates: start: 2013
  4. OXCARBAZEPINE. [Suspect]
     Active Substance: OXCARBAZEPINE
     Indication: TRIGEMINAL NEURALGIA
     Dosage: 0.5 DF, QD
     Route: 065
     Dates: start: 2013
  5. MS CONTIN [Suspect]
     Active Substance: MORPHINE SULFATE
     Indication: TRIGEMINAL NEURALGIA
     Dosage: 150 MG,  FOR THREE DOSE
     Route: 065
     Dates: start: 201504
  6. CARBAMAZEPINE. [Suspect]
     Active Substance: CARBAMAZEPINE
     Indication: TRIGEMINAL NEURALGIA
     Dosage: 0.5 DF, QD
     Route: 065
     Dates: start: 2013

REACTIONS (7)
  - Head discomfort [Unknown]
  - Depression [Unknown]
  - Nausea [Unknown]
  - Drug ineffective [Unknown]
  - Feeling abnormal [Unknown]
  - Lethargy [Unknown]
  - Product use issue [Unknown]
